FAERS Safety Report 6441479-3 (Version None)
Quarter: 2009Q4

REPORT INFORMATION
  Report Type: 
  Country: None (occurrence: None)
  Receive Date: 20091116
  Receipt Date: 20091110
  Transmission Date: 20100525
  Serious: Yes (Hospitalization)
  Sender: FDA-Public Use
  Company Number: A0817015A

PATIENT
  Age: 51 Year
  Sex: Male

DRUGS (1)
  1. ROSIGLITAZONE MALEATE [Suspect]
     Route: 065

REACTIONS (3)
  - CARDIAC FAILURE [None]
  - DIABETES MELLITUS [None]
  - MYOCARDIAL INFARCTION [None]
